FAERS Safety Report 22399790 (Version 3)
Quarter: 2023Q4

REPORT INFORMATION
  Report Type: Spontaneous
  Country: US (occurrence: US)
  Receive Date: 20230602
  Receipt Date: 20231010
  Transmission Date: 20240110
  Serious: Yes (Other)
  Sender: FDA-Public Use
  Company Number: US-PFIZER INC-PV202300097253

PATIENT
  Age: 86 Year
  Sex: Female

DRUGS (1)
  1. EUCRISA [Suspect]
     Active Substance: CRISABOROLE
     Indication: Eczema
     Dosage: ONE TO TWO TIMES DAILY AS DIRECTED BY PHYSICIAN
     Route: 061

REACTIONS (3)
  - Mental impairment [Unknown]
  - Hypoacusis [Unknown]
  - Off label use [Unknown]
